FAERS Safety Report 4536851-2 (Version None)
Quarter: 2004Q4

REPORT INFORMATION
  Report Type: 
  Country: None (occurrence: None)
  Receive Date: 20041223
  Receipt Date: 20041221
  Transmission Date: 20050328
  Serious: Yes (Other)
  Sender: FDA-Public Use
  Company Number: 20366

PATIENT
  Age: 73 Year
  Sex: Male

DRUGS (1)
  1. ZOVIRAX [Suspect]
     Indication: HERPES SIMPLEX
     Dosage: 1APP UNKNOWN
     Route: 061
     Dates: start: 20041217

REACTIONS (2)
  - HAEMORRHAGE [None]
  - HERPES SIMPLEX [None]
